FAERS Safety Report 9233139 (Version 3)
Quarter: 2013Q3

REPORT INFORMATION
  Report Type: Report from Study
  Country: AU (occurrence: AU)
  Receive Date: 20130416
  Receipt Date: 20130813
  Transmission Date: 20140515
  Serious: Yes (Hospitalization, Other)
  Sender: FDA-Public Use
  Company Number: PHHY2013AU035674

PATIENT
  Age: 40 Year
  Sex: Male

DRUGS (7)
  1. CLOZARIL [Suspect]
     Indication: SCHIZOPHRENIA
     Dosage: 450 MG
     Route: 048
     Dates: start: 20121109
  2. FLUPENTIXOL DECANOATE [Concomitant]
     Indication: SCHIZOPHRENIA
     Dosage: 80 MG (FOR THE NIGHTLY)
     Route: 030
     Dates: start: 201207
  3. GLICLAZIDA MER [Concomitant]
     Indication: DIABETES MELLITUS
     Dosage: 120 MG (NOCTE)
     Route: 048
     Dates: start: 2011
  4. SITAGLIPTIN [Concomitant]
     Indication: DIABETES MELLITUS
     Dosage: 100 MG (MANE)
     Route: 048
     Dates: start: 2012
  5. MAXOLON [Concomitant]
     Indication: PALLIATIVE CARE
     Dosage: UNK
     Route: 048
     Dates: start: 201306
  6. PANADOL [Concomitant]
     Indication: PALLIATIVE CARE
     Dosage: UNK
     Route: 048
     Dates: start: 201306
  7. ENDONE [Concomitant]
     Indication: PALLIATIVE CARE
     Dosage: UNK
     Route: 048
     Dates: start: 201306

REACTIONS (8)
  - Salivary gland cancer [Not Recovered/Not Resolved]
  - Neuroendocrine carcinoma [Not Recovered/Not Resolved]
  - Metastases to lymph nodes [Unknown]
  - Neck mass [Unknown]
  - Oral neoplasm [Unknown]
  - Submandibular mass [Unknown]
  - Lymphoma [Unknown]
  - Hepatitis C [Unknown]
